FAERS Safety Report 9795874 (Version 2)
Quarter: 2014Q1

REPORT INFORMATION
  Report Type: Report from Study
  Country: CO (occurrence: CO)
  Receive Date: 20140103
  Receipt Date: 20140109
  Transmission Date: 20141002
  Serious: Yes (Death, Hospitalization)
  Sender: FDA-Public Use
  Company Number: CO-SA-2013SA135190

PATIENT
  Age: 60 Year
  Sex: Female

DRUGS (1)
  1. LANTUS [Suspect]
     Indication: DIABETES MELLITUS
     Dosage: DOSE: 24 UNITS AM AND 34 UNITS PM
     Route: 058
     Dates: start: 201310, end: 20131125

REACTIONS (3)
  - Meningitis bacterial [Fatal]
  - Cellulitis [Unknown]
  - Drug administration error [Unknown]
